FAERS Safety Report 21854578 (Version 3)
Quarter: 2023Q1

REPORT INFORMATION
  Report Type: Spontaneous
  Country: US (occurrence: US)
  Receive Date: 20230112
  Receipt Date: 20230222
  Transmission Date: 20230417
  Serious: Yes (Death)
  Sender: FDA-Public Use
  Company Number: US-PFIZER INC-PV202300006083

PATIENT
  Age: 11 Day
  Sex: Male
  Weight: 2.78 kg

DRUGS (1)
  1. SOMATROPIN [Suspect]
     Active Substance: SOMATROPIN
     Dosage: 0.2 MG, ALTERNATE DAY (EVERY OTHER DAY)

REACTIONS (2)
  - Death [Fatal]
  - Off label use [Unknown]
